FAERS Safety Report 25541612 (Version 10)
Quarter: 2025Q4

REPORT INFORMATION
  Report Type: Report from Study
  Country: US (occurrence: US)
  Receive Date: 20250711
  Receipt Date: 20251229
  Transmission Date: 20260118
  Serious: No
  Sender: DECIPHERA PHARMACEUTICALS
  Company Number: US-DECIPHERA PHARMACEUTICALS LLC-2025US000796

PATIENT
  Age: 78 Year
  Sex: Female

DRUGS (5)
  1. ROMVIMZA [Suspect]
     Active Substance: VIMSELTINIB
     Indication: Giant cell tumour of tendon sheath
     Dosage: 14 MILLIGRAM, TWICE WEEKLY
     Dates: start: 20250601
  2. ROMVIMZA [Suspect]
     Active Substance: VIMSELTINIB
     Indication: Giant cell tumour of tendon sheath
     Dosage: 30 MILLIGRAM, TWICE WEEKLY (MONDAY, THURSDAY)
     Route: 061
     Dates: start: 20250619, end: 2025
  3. ROMVIMZA [Suspect]
     Active Substance: VIMSELTINIB
     Dosage: 30 MILLIGRAM, TWICE WEEKLY (MONDAY, THURSDAY)
     Route: 061
     Dates: start: 2025, end: 2025
  4. ROMVIMZA [Suspect]
     Active Substance: VIMSELTINIB
     Dosage: 30 MILLIGRAM, TWICE WEEKLY (FULL DOSE)
     Route: 061
     Dates: start: 2025
  5. ROMVIMZA [Suspect]
     Active Substance: VIMSELTINIB
     Dosage: 30 MILLIGRAM, TWICE WEEKLY, MONDAY THURSDAY

REACTIONS (17)
  - Hepatic enzyme increased [Not Recovered/Not Resolved]
  - Brain fog [Not Recovered/Not Resolved]
  - Blood pressure increased [Unknown]
  - Swelling face [Not Recovered/Not Resolved]
  - Abdominal distension [Unknown]
  - Jaw disorder [Unknown]
  - Vertigo [Not Recovered/Not Resolved]
  - Dizziness [Not Recovered/Not Resolved]
  - Feeling cold [Unknown]
  - Head discomfort [Not Recovered/Not Resolved]
  - Neck pain [Unknown]
  - Erythema [Unknown]
  - Peripheral swelling [Unknown]
  - Lacrimation increased [Unknown]
  - Fatigue [Unknown]
  - Periorbital oedema [Not Recovered/Not Resolved]
  - Therapeutic response unexpected [Unknown]

NARRATIVE: CASE EVENT DATE: 20250101
